FAERS Safety Report 5782481-4 (Version None)
Quarter: 2008Q2

REPORT INFORMATION
  Report Type: 
  Country: None (occurrence: None)
  Receive Date: 20080623
  Receipt Date: 20080616
  Transmission Date: 20081010
  Serious: Yes (Death, Hospitalization)
  Sender: FDA-Public Use
  Company Number: PHHY2008JO11122

PATIENT
  Age: 57 Year
  Sex: Male

DRUGS (8)
  1. LESCOL XL [Suspect]
     Indication: DYSLIPIDAEMIA
     Dosage: 80 MG, QD
     Route: 048
     Dates: start: 20050101
  2. GEMFIBROZIL [Suspect]
     Indication: MYOCARDIAL ISCHAEMIA
     Dosage: 600 MG, BID
     Route: 048
  3. CARVEDILOL [Concomitant]
  4. ENALAPRIL MALEATE [Concomitant]
  5. PLAVIX [Concomitant]
  6. GLUCOPHAGE [Concomitant]
  7. LASIX [Concomitant]
  8. ASPIRIN [Concomitant]

REACTIONS (9)
  - BLOOD CREATINE PHOSPHOKINASE INCREASED [None]
  - HAEMODIALYSIS [None]
  - HYPERKALAEMIA [None]
  - HYPERPHOSPHATAEMIA [None]
  - HYPOCALCAEMIA [None]
  - METABOLIC ACIDOSIS [None]
  - MUSCULAR WEAKNESS [None]
  - RENAL FAILURE ACUTE [None]
  - RHABDOMYOLYSIS [None]
